FAERS Safety Report 6469189-7 (Version None)
Quarter: 2009Q4

REPORT INFORMATION
  Report Type: 
  Country: None (occurrence: None)
  Receive Date: 20091203
  Receipt Date: 20071019
  Transmission Date: 20100525
  Serious: Yes (Hospitalization, Other)
  Sender: FDA-Public Use
  Company Number: US-ELI_LILLY_AND_COMPANY-US200705000968

PATIENT
  Sex: Male
  Weight: 111.57 kg

DRUGS (15)
  1. ZYPREXA [Suspect]
     Indication: SCHIZOPHRENIA, PARANOID TYPE
     Dates: start: 20060801
  2. ZYPREXA [Suspect]
     Dosage: 20 MG, DAILY (1/D)
     Dates: start: 20070227
  3. ZYPREXA [Suspect]
     Dosage: 20 MG, 2/D
     Dates: start: 20070312, end: 20070430
  4. CLOZARIL [Concomitant]
     Dosage: UNK, UNK
     Dates: start: 20040622
  5. CLOZARIL [Concomitant]
     Dosage: UNK, UNK
     Dates: start: 20060808
  6. CLOZARIL [Concomitant]
     Dosage: 400 MG, UNK
     Dates: start: 20060821
  7. CLOZARIL [Concomitant]
     Dates: start: 20060901
  8. CLOZARIL [Concomitant]
     Dosage: 600 MG, UNK
     Dates: end: 20060927
  9. GEODON [Concomitant]
     Dosage: 320 MG, DAILY (1/D)
     Dates: start: 20060927, end: 20070201
  10. GEODON [Concomitant]
     Dates: start: 20060801
  11. GEODON [Concomitant]
     Dosage: 80 MG, UNK
     Dates: start: 20060901
  12. ZOLOFT [Concomitant]
     Dates: end: 20070801
  13. ZOLOFT [Concomitant]
     Dosage: 25 MG, UNK
     Dates: start: 20060821, end: 20060927
  14. ATIVAN [Concomitant]
  15. KLONOPIN [Concomitant]

REACTIONS (29)
  - AGGRESSION [None]
  - ASPARTATE AMINOTRANSFERASE INCREASED [None]
  - BLOOD CHLORIDE DECREASED [None]
  - BLOOD CREATINE PHOSPHOKINASE INCREASED [None]
  - BLOOD LACTIC ACID INCREASED [None]
  - BRADYKINESIA [None]
  - CONFUSIONAL STATE [None]
  - CONTUSION [None]
  - DELIRIUM [None]
  - DISORIENTATION [None]
  - DIZZINESS [None]
  - FLUSHING [None]
  - HAEMATURIA [None]
  - HYPERGLYCAEMIA [None]
  - HYPERHIDROSIS [None]
  - HYPONATRAEMIA [None]
  - MENTAL STATUS CHANGES [None]
  - NAUSEA [None]
  - NEUROLEPTIC MALIGNANT SYNDROME [None]
  - NEUTROPHILIA [None]
  - NYSTAGMUS [None]
  - OVERDOSE [None]
  - PYREXIA [None]
  - RED BLOOD CELLS CSF POSITIVE [None]
  - SOMNOLENCE [None]
  - SPEECH DISORDER [None]
  - STUPOR [None]
  - UNRESPONSIVE TO STIMULI [None]
  - WHITE BLOOD CELL COUNT INCREASED [None]
